FAERS Safety Report 23751375 (Version 3)
Quarter: 2024Q3

REPORT INFORMATION
  Report Type: Spontaneous
  Country: US (occurrence: US)
  Receive Date: 20240417
  Receipt Date: 20240926
  Transmission Date: 20241017
  Serious: No
  Sender: NOVARTIS
  Company Number: US-002147023-NVSC2024US081264

PATIENT
  Age: 72 Year
  Sex: Female
  Weight: 54 kg

DRUGS (1)
  1. LEQVIO [Suspect]
     Active Substance: INCLISIRAN SODIUM
     Indication: Hyperlipidaemia
     Dosage: 284/1.5 ML Q6 MONTHS
     Route: 065
     Dates: start: 20230830

REACTIONS (4)
  - Injection site pruritus [Unknown]
  - Product storage error [Unknown]
  - Injection site erythema [Unknown]
  - Injection site inflammation [Unknown]
